FAERS Safety Report 9287220 (Version 1)
Quarter: 2013Q2

REPORT INFORMATION
  Report Type: Spontaneous
  Country: JP (occurrence: JP)
  Receive Date: 20130513
  Receipt Date: 20130513
  Transmission Date: 20140414
  Serious: Yes (Hospitalization)
  Sender: FDA-Public Use
  Company Number: JP-B.I. PHARMACEUTICALS,INC./RIDGEFIELD-2013-BI-12848NB

PATIENT
  Age: 76 Year
  Sex: Male

DRUGS (2)
  1. PRAZAXA [Suspect]
     Route: 065
  2. WARFARIN POTASSIUM [Concomitant]
     Route: 065
     Dates: end: 20130430

REACTIONS (1)
  - Cardiac function test [Unknown]
